FAERS Safety Report 6231339-5 (Version None)
Quarter: 2009Q2

REPORT INFORMATION
  Report Type: 
  Country: None (occurrence: None)
  Receive Date: 20090616
  Receipt Date: 20090601
  Transmission Date: 20091009
  Serious: Yes (Life-Threatening, Hospitalization)
  Sender: FDA-Public Use
  Company Number: JP-AMGEN-US179609

PATIENT
  Sex: Female
  Weight: 49 kg

DRUGS (2)
  1. ENBREL [Suspect]
     Indication: RHEUMATOID ARTHRITIS
     Route: 058
     Dates: start: 20051001, end: 20060421
  2. ISCOTIN [Concomitant]
     Dosage: UNKNOWN
     Route: 048

REACTIONS (2)
  - PNEUMONIA PNEUMOCOCCAL [None]
  - SEPSIS [None]
